FAERS Safety Report 8131206-6 (Version None)
Quarter: 2012Q1

REPORT INFORMATION
  Report Type: 
  Country: None (occurrence: None)
  Receive Date: 20120103
  Receipt Date: 20111117
  Transmission Date: 20120608
  Serious: No
  Sender: FDA-Public Use
  Company Number: AE-2011-003647

PATIENT
  Age: 45 Year
  Sex: Male

DRUGS (1)
  1. INCIVEK [Suspect]
     Dosage: ORAL
     Route: 048
     Dates: start: 20111001

REACTIONS (2)
  - RASH [None]
  - SKIN BURNING SENSATION [None]
